FAERS Safety Report 4769117-6 (Version None)
Quarter: 2005Q3

REPORT INFORMATION
  Report Type: 
  Country: None (occurrence: None)
  Receive Date: 20050912
  Receipt Date: 20050422
  Transmission Date: 20060218
  Serious: Yes (Life-Threatening)
  Sender: FDA-Public Use
  Company Number: 2005-BP-06676BP

PATIENT
  Age: 52 Year
  Sex: Male
  Weight: 73.2 kg

DRUGS (13)
  1. VIRAMUNE [Suspect]
     Indication: ENCEPHALOPATHY
     Dosage: 200 MG (200 MG), PO; 400 MG (200 MG), PO
     Route: 048
     Dates: start: 20050313, end: 20050327
  2. VIRAMUNE [Suspect]
     Indication: HIV INFECTION
     Dosage: 200 MG (200 MG), PO; 400 MG (200 MG), PO
     Route: 048
     Dates: start: 20050313, end: 20050327
  3. VIRAMUNE [Suspect]
     Indication: ENCEPHALOPATHY
     Dosage: 200 MG (200 MG), PO; 400 MG (200 MG), PO
     Route: 048
     Dates: start: 20050328, end: 20050408
  4. VIRAMUNE [Suspect]
     Indication: HIV INFECTION
     Dosage: 200 MG (200 MG), PO; 400 MG (200 MG), PO
     Route: 048
     Dates: start: 20050328, end: 20050408
  5. KALETRA [Concomitant]
  6. TRIZIVIR [Concomitant]
  7. VIREAD [Concomitant]
  8. ANDROGEL [Concomitant]
  9. TEMAZEPAM [Concomitant]
  10. FORTOVASE [Concomitant]
  11. NORVIR [Concomitant]
  12. RESCRIPTOR [Concomitant]
  13. VIDEX [Concomitant]

REACTIONS (4)
  - HEPATIC ENZYME INCREASED [None]
  - HEPATITIS [None]
  - RASH ERYTHEMATOUS [None]
  - TRANSAMINASES INCREASED [None]
